FAERS Safety Report 5373760-3 (Version None)
Quarter: 2007Q2

REPORT INFORMATION
  Report Type: 
  Country: None (occurrence: None)
  Receive Date: 20070628
  Receipt Date: 20070620
  Transmission Date: 20071010
  Serious: Yes (Death, Other)
  Sender: FDA-Public Use
  Company Number: US-ELI_LILLY_AND_COMPANY-US200706004669

PATIENT
  Age: 71 Year
  Sex: Female

DRUGS (1)
  1. HUMULIN N [Suspect]
     Indication: DIABETES MELLITUS

REACTIONS (5)
  - CARDIAC FAILURE CONGESTIVE [None]
  - COMA [None]
  - HYPERSENSITIVITY [None]
  - INFECTION [None]
  - LEG AMPUTATION [None]
